FAERS Safety Report 7228303-6 (Version None)
Quarter: 2011Q1

REPORT INFORMATION
  Report Type: 
  Country: None (occurrence: None)
  Receive Date: 20110114
  Receipt Date: 20110105
  Transmission Date: 20110831
  Serious: Yes (Hospitalization, Other)
  Sender: FDA-Public Use
  Company Number: US-ASTRAZENECA-2011SE01033

PATIENT
  Age: 83 Year
  Sex: Male

DRUGS (1)
  1. SEROQUEL XR [Suspect]
     Indication: BIPOLAR DISORDER
     Route: 048

REACTIONS (5)
  - PROSTATIC DISORDER [None]
  - HAEMATURIA [None]
  - RENAL DISORDER [None]
  - RESPIRATORY TRACT INFECTION [None]
  - ASTHENIA [None]
